FAERS Safety Report 19611501 (Version 1)
Quarter: 2021Q3

REPORT INFORMATION
  Report Type: Spontaneous
  Country: US (occurrence: US)
  Receive Date: 20210727
  Receipt Date: 20210727
  Transmission Date: 20211014
  Serious: Yes (Death, Hospitalization, Other)
  Sender: FDA-Public Use
  Company Number: US-AUROBINDO-AUR-APL-2021-030979

PATIENT
  Age: 3 Year
  Sex: Female

DRUGS (1)
  1. DIPHENHYDRAMINE. [Suspect]
     Active Substance: DIPHENHYDRAMINE
     Indication: PRODUCT USED FOR UNKNOWN INDICATION
     Dosage: UNK
     Route: 048

REACTIONS (19)
  - Pulmonary oedema [Fatal]
  - Capillary nail refill test abnormal [Fatal]
  - Brain herniation [Fatal]
  - Mydriasis [Fatal]
  - Respiratory arrest [Fatal]
  - Apnoea [Fatal]
  - Abdominal distension [Fatal]
  - Hypoxic-ischaemic encephalopathy [Fatal]
  - Epistaxis [Fatal]
  - Rales [Fatal]
  - Peripheral coldness [Fatal]
  - Cardiac arrest [Fatal]
  - Toxicity to various agents [Fatal]
  - Aspiration [Fatal]
  - Mouth haemorrhage [Fatal]
  - Rectal haemorrhage [Fatal]
  - Heart rate decreased [Fatal]
  - Accidental exposure to product [Fatal]
  - Brain oedema [Fatal]
